FAERS Safety Report 13926334 (Version 5)
Quarter: 2019Q4

REPORT INFORMATION
  Report Type: Spontaneous
  Country: JP (occurrence: JP)
  Receive Date: 20170831
  Receipt Date: 20191203
  Transmission Date: 20200122
  Serious: Yes (Other)
  Sender: FDA-Public Use
  Company Number: JP-PFIZER INC-2017376425

PATIENT
  Age: 90 Year
  Sex: Female

DRUGS (11)
  1. AMLODIPINE BESILATE W/CANDESARTAN CILEXETIL [Concomitant]
     Dosage: 2 DF, 1X/DAY (2 DF, ONCE DAILY, IN THE MORNING)
     Route: 048
  2. ELDECALCITOL [Concomitant]
     Active Substance: ELDECALCITOL
     Dosage: 0.5 UG, CYCLIC (EVERY OTHER DAY, MORNING)
     Route: 048
  3. ROSUVASTATIN CALCIUM. [Concomitant]
     Active Substance: ROSUVASTATIN CALCIUM
     Dosage: 2.5 MG, 1X/DAY (ONCE DAILY, IN THE MORNING)
     Route: 048
     Dates: end: 20190521
  4. CELECOXIB. [Concomitant]
     Active Substance: CELECOXIB
     Indication: OSTEOPOROSIS
     Dosage: 100 MG, CYCLIC (TWICE DAILY, IN THE MORNING AND EVENING)
     Route: 048
  5. MEMANTINE. [Concomitant]
     Active Substance: MEMANTINE
     Dosage: 20 MG, 1X/DAY (ONCE DAILY, IN THE MORNING)
     Route: 048
  6. LIPITOR [Suspect]
     Active Substance: ATORVASTATIN CALCIUM
     Dosage: 10 MG, 1X/DAY (10 MG, ONCE DAILY, IN THE MORNING)
     Route: 048
     Dates: start: 20160716, end: 20160910
  7. FAMOTIDINE. [Concomitant]
     Active Substance: FAMOTIDINE
     Dosage: UNK
  8. ROSUVASTATIN CALCIUM. [Concomitant]
     Active Substance: ROSUVASTATIN CALCIUM
     Dosage: 2.5 MG, 1X/DAY (ONCE DAILY, IN THE MORNING)
     Route: 048
     Dates: start: 20170128
  9. GOREISAN [ALISMA PLANTAGO-AQUATICA VAR. ORIENTALE TUBER;ATRACTYLODES L [Concomitant]
     Dosage: 2.5 G, CYCLIC (TWICE DAILY, IN THE MORNING AND EVENING)
     Route: 048
  10. LIPITOR [Suspect]
     Active Substance: ATORVASTATIN CALCIUM
     Indication: DYSLIPIDAEMIA
     Dosage: 5 MG, 1X/DAY (ONCE DAILY, IN THE MORNING)
     Route: 048
     Dates: start: 20160521, end: 20160715
  11. BISOPROLOL [Concomitant]
     Active Substance: BISOPROLOL
     Dosage: 10 MG, 1X/DAY (ONCE DAILY, IN THE MORNING)
     Route: 048

REACTIONS (1)
  - Cholestatic liver injury [Unknown]
